FAERS Safety Report 9356821 (Version 1)
Quarter: 2013Q2

REPORT INFORMATION
  Report Type: Spontaneous
  Country: US (occurrence: US)
  Receive Date: 20130620
  Receipt Date: 20130620
  Transmission Date: 20140414
  Serious: No
  Sender: FDA-Public Use
  Company Number: US-009507513-1306USA005829

PATIENT
  Age: 13 Year
  Sex: Male

DRUGS (2)
  1. SINGULAIR [Suspect]
     Indication: ASTHMA
     Dosage: ONCE DAILY
     Route: 048
     Dates: start: 201304
  2. SINGULAIR [Suspect]
     Indication: ASTHMA
     Dosage: UNK
     Route: 048
     Dates: start: 201304, end: 201304

REACTIONS (2)
  - Upper-airway cough syndrome [Not Recovered/Not Resolved]
  - Nausea [Not Recovered/Not Resolved]
